FAERS Safety Report 9681789 (Version 1)
Quarter: 2013Q4

REPORT INFORMATION
  Report Type: Spontaneous
  Country: CO (occurrence: CO)
  Receive Date: 20131111
  Receipt Date: 20131111
  Transmission Date: 20140711
  Serious: Yes (Other)
  Sender: FDA-Public Use
  Company Number: CO-PFIZER INC-2013319276

PATIENT
  Age: 64 Year
  Sex: Female

DRUGS (10)
  1. GENOTROPIN [Suspect]
     Indication: HYPOPITUITARISM
     Dosage: 0.3 MG, 1X/DAY
     Route: 058
     Dates: start: 2009
  2. URSODEOXYCHOLIC ACID [Concomitant]
     Indication: AUTOIMMUNE HEPATITIS
     Dosage: 300 MG, 2X/DAY
     Route: 048
     Dates: start: 1999
  3. LOSARTAN [Concomitant]
     Indication: HYPERTENSION
     Dosage: 50 MG, AS NEEDED
     Route: 048
     Dates: start: 1999
  4. BENADRYL [Concomitant]
     Indication: STEVENS-JOHNSON SYNDROME
     Dosage: 50 MG, 1X/DAY
     Route: 048
     Dates: start: 2000
  5. PLAVIX [Concomitant]
     Indication: ANTICOAGULANT THERAPY
     Dosage: 75 MG, 1X/DAY
     Route: 048
     Dates: start: 2008
  6. ACETAMINOPHEN [Concomitant]
     Indication: INFARCTION
     Dosage: 500 MG, 2X/DAY
     Dates: start: 2008
  7. FUROSEMIDE [Concomitant]
     Indication: OEDEMA
     Dosage: 40 MG, 3X/DAY
     Route: 048
     Dates: start: 2008
  8. SPIRONOLACTONE [Concomitant]
     Indication: BLOOD POTASSIUM INCREASED
     Dosage: 100 MG, 1X/DAY
     Route: 048
     Dates: start: 2008
  9. LANTADIN [Concomitant]
     Indication: ADRENOCORTICAL STEROID THERAPY
     Dosage: 6 MG, 1X/DAY
     Route: 048
     Dates: start: 2009
  10. RIVOTRIL [Concomitant]
     Dosage: 50 MG, 1X/DAY
     Route: 048

REACTIONS (3)
  - Stevens-Johnson syndrome [Unknown]
  - Hypothyroidism [Unknown]
  - Swelling [Unknown]
